FAERS Safety Report 4340421-9 (Version None)
Quarter: 2004Q2

REPORT INFORMATION
  Report Type: 
  Country: None (occurrence: None)
  Receive Date: 20040414
  Receipt Date: 20040407
  Transmission Date: 20050107
  Serious: Yes (Other)
  Sender: FDA-Public Use
  Company Number: CIP04000673

PATIENT
  Age: 20 Year
  Sex: Male

DRUGS (2)
  1. ASACOL [Suspect]
     Indication: COLITIS ULCERATIVE
     Dosage: 2400 MG DAILY, ORAL
     Route: 048
     Dates: start: 20031001, end: 20040201
  2. IMODIUM ^JANSSEN^ [Concomitant]

REACTIONS (2)
  - CRYPTOGENIC ORGANIZING PNEUMONIA [None]
  - WEIGHT DECREASED [None]
